FAERS Safety Report 6519085-1 (Version None)
Quarter: 2009Q4

REPORT INFORMATION
  Report Type: 
  Country: None (occurrence: None)
  Receive Date: 20091228
  Receipt Date: 20091217
  Transmission Date: 20100525
  Serious: Yes (Hospitalization, Other)
  Sender: FDA-Public Use
  Company Number: GB-ROCHE-675654

PATIENT
  Age: 48 Year
  Sex: Female

DRUGS (9)
  1. TRASTUZUMAB [Suspect]
     Indication: BREAST CANCER
     Route: 065
     Dates: start: 20060101, end: 20070301
  2. TRASTUZUMAB [Suspect]
     Route: 065
     Dates: start: 20071001, end: 20080301
  3. TRASTUZUMAB [Suspect]
     Route: 065
  4. CAPECITABINE [Suspect]
     Indication: BREAST CANCER
     Route: 065
     Dates: start: 20070501, end: 20070601
  5. CAPECITABINE [Suspect]
     Route: 065
     Dates: start: 20080601, end: 20080801
  6. DOCETAXEL [Suspect]
     Indication: BREAST CANCER
     Route: 065
     Dates: start: 20071001, end: 20080301
  7. LAPATINIB [Suspect]
     Indication: BREAST CANCER
     Route: 065
     Dates: start: 20060601, end: 20080801
  8. PACLITAXEL [Suspect]
     Indication: BREAST CANCER
     Route: 065
  9. VINORELBINE [Suspect]
     Indication: BREAST CANCER
     Route: 065
     Dates: start: 20060601, end: 20070901

REACTIONS (7)
  - ABDOMINAL PAIN [None]
  - DRUG INTOLERANCE [None]
  - JOINT SWELLING [None]
  - LETHARGY [None]
  - MALIGNANT NEOPLASM PROGRESSION [None]
  - UTERINE HAEMORRHAGE [None]
  - VOMITING [None]
